FAERS Safety Report 7251131-2 (Version None)
Quarter: 2011Q1

REPORT INFORMATION
  Report Type: 
  Country: None (occurrence: None)
  Receive Date: 20110128
  Receipt Date: 20110114
  Transmission Date: 20110831
  Serious: Yes (Other)
  Sender: FDA-Public Use
  Company Number: ZA-PFIZER INC-2011019751

PATIENT
  Sex: Male

DRUGS (7)
  1. ATARAX [Suspect]
     Indication: THERMAL BURN
     Dosage: 100 MG, UNK
     Dates: start: 20101001
  2. ELTROXIN [Concomitant]
  3. GAVISCON [Concomitant]
  4. ATARAX [Suspect]
     Indication: ECZEMA
     Dosage: 25 MG, UNK
     Dates: start: 20101001
  5. CORTISONE [Concomitant]
  6. PANAFCORT [Concomitant]
  7. PARLODEL [Suspect]
     Indication: PITUITARY TUMOUR BENIGN
     Dosage: 100 MG, UNK
     Dates: start: 19860101

REACTIONS (5)
  - LOSS OF CONSCIOUSNESS [None]
  - SPEECH DISORDER [None]
  - SOMNOLENCE [None]
  - INCOHERENT [None]
  - DRUG INTERACTION [None]
